FAERS Safety Report 7666970-3 (Version None)
Quarter: 2011Q3

REPORT INFORMATION
  Report Type: 
  Country: None (occurrence: None)
  Receive Date: 20110806
  Receipt Date: 20110423
  Transmission Date: 20111222
  Serious: No
  Sender: FDA-Public Use
  Company Number: US-ABBOTT-11P-163-0721525-00

PATIENT
  Sex: Male
  Weight: 99.88 kg

DRUGS (5)
  1. NIASPAN [Suspect]
     Indication: PRODUCT USED FOR UNKNOWN INDICATION
     Dosage: INSTRUCTED TO TAKE AT LUNCH
     Dates: start: 20110221, end: 20110301
  2. ASPIRIN [Concomitant]
     Indication: PRODUCT USED FOR UNKNOWN INDICATION
  3. VERAPAMIL [Concomitant]
     Indication: HYPERTENSION
  4. DIOVAN [Concomitant]
     Indication: HYPERTENSION
  5. VITAMIN TAB [Concomitant]
     Indication: PRODUCT USED FOR UNKNOWN INDICATION

REACTIONS (9)
  - COUGH [None]
  - OROPHARYNGEAL PAIN [None]
  - APHONIA [None]
  - DIARRHOEA [None]
  - PAIN IN EXTREMITY [None]
  - ARTHRALGIA [None]
  - FATIGUE [None]
  - PRURITUS [None]
  - ASTHENIA [None]
